FAERS Safety Report 25418371 (Version 1)
Quarter: 2025Q2

REPORT INFORMATION
  Report Type: Report from Study
  Country: CA (occurrence: CA)
  Receive Date: 20250610
  Receipt Date: 20250610
  Transmission Date: 20250717
  Serious: Yes (Death, Other)
  Sender: AMGEN
  Company Number: CA-AMGEN-CANSL2024127566

PATIENT
  Age: 72 Year
  Sex: Female

DRUGS (1)
  1. AVSOLA [Suspect]
     Active Substance: INFLIXIMAB-AXXQ
     Indication: Crohn^s disease
     Dosage: 7.5 MILLIGRAM/KILOGRAM, Q4WK
     Route: 065
     Dates: end: 202405

REACTIONS (8)
  - Death [Fatal]
  - Pancreatic carcinoma [Unknown]
  - Faeces discoloured [Unknown]
  - Chromaturia [Unknown]
  - Unevaluable event [Unknown]
  - Decreased appetite [Unknown]
  - Weight decreased [Unknown]
  - Pruritus [Unknown]

NARRATIVE: CASE EVENT DATE: 20240101
